FAERS Safety Report 21476889 (Version 5)
Quarter: 2022Q4

REPORT INFORMATION
  Report Type: Spontaneous
  Country: JP (occurrence: JP)
  Receive Date: 20221019
  Receipt Date: 20221221
  Transmission Date: 20230112
  Serious: Yes (Hospitalization)
  Sender: FDA-Public Use
  Company Number: JP-CHUGAI-2022040530AA

PATIENT
  Age: 48 Year
  Sex: Female
  Weight: 41 kg

DRUGS (5)
  1. KADCYLA [Suspect]
     Active Substance: ADO-TRASTUZUMAB EMTANSINE
     Indication: Breast cancer
     Dosage: 180 MILLIGRAM, SINGLE
     Route: 041
     Dates: start: 20220214, end: 20220214
  2. KADCYLA [Suspect]
     Active Substance: ADO-TRASTUZUMAB EMTANSINE
     Dosage: 160 MILLIGRAM, SINGLE
     Route: 041
     Dates: start: 20220307, end: 20220307
  3. KADCYLA [Suspect]
     Active Substance: ADO-TRASTUZUMAB EMTANSINE
     Dosage: 140 MILLIGRAM
     Route: 041
     Dates: start: 20220328, end: 20220822
  4. KADCYLA [Suspect]
     Active Substance: ADO-TRASTUZUMAB EMTANSINE
     Dosage: 125 MILLIGRAM, SINGLE
     Route: 041
     Dates: start: 20220912, end: 20220912
  5. KADCYLA [Suspect]
     Active Substance: ADO-TRASTUZUMAB EMTANSINE
     Dosage: 118 MILLIGRAM, SINGLE
     Route: 041
     Dates: start: 20221003, end: 20221003

REACTIONS (3)
  - Haemangioma [Recovering/Resolving]
  - Haemangioma [Unknown]
  - Platelet count decreased [Recovered/Resolved]

NARRATIVE: CASE EVENT DATE: 20220221
